FAERS Safety Report 5179697-7 (Version None)
Quarter: 2006Q4

REPORT INFORMATION
  Report Type: 
  Country: None (occurrence: None)
  Receive Date: 20061211
  Receipt Date: 20061208
  Transmission Date: 20070319
  Serious: Yes (Other)
  Sender: FDA-Public Use
  Company Number: 2006148800

PATIENT
  Age: 76 Year
  Sex: Female
  Weight: 69.8539 kg

DRUGS (3)
  1. LIPITOR [Suspect]
     Indication: BLOOD CHOLESTEROL INCREASED
     Dosage: 10 MG (10 MG, 1 IN 1 D)
  2. SYNTHROID [Concomitant]
  3. TOPROL-XL [Concomitant]

REACTIONS (5)
  - ABASIA [None]
  - DRUG INEFFECTIVE [None]
  - LYME DISEASE [None]
  - MUSCULAR WEAKNESS [None]
  - MYALGIA [None]
